FAERS Safety Report 11062352 (Version 1)
Quarter: 2015Q2

REPORT INFORMATION
  Report Type: Report from Study
  Country: US (occurrence: US)
  Receive Date: 20150424
  Receipt Date: 20150424
  Transmission Date: 20150821
  Serious: Yes (Other)
  Sender: FDA-Public Use
  Company Number: US-BAYER-2015-117098

PATIENT
  Age: 78 Year
  Sex: Male

DRUGS (1)
  1. NEXAVAR [Suspect]
     Active Substance: SORAFENIB
     Indication: HEPATIC CANCER
     Dosage: 200 MG, BID
     Route: 048
     Dates: start: 201503

REACTIONS (6)
  - Basal cell carcinoma [None]
  - Pain in extremity [None]
  - Night sweats [None]
  - Plantar erythema [None]
  - Constipation [None]
  - Anal fissure [None]

NARRATIVE: CASE EVENT DATE: 201503
